FAERS Safety Report 6467231-0 (Version None)
Quarter: 2009Q4

REPORT INFORMATION
  Report Type: 
  Country: None (occurrence: None)
  Receive Date: 20091130
  Receipt Date: 20091113
  Transmission Date: 20100525
  Serious: Yes (Hospitalization)
  Sender: FDA-Public Use
  Company Number: 8054538

PATIENT
  Age: 78 Year
  Sex: Female
  Weight: 46 kg

DRUGS (6)
  1. CIMZIA [Suspect]
     Indication: CROHN'S DISEASE
  2. PREDNISONE [Concomitant]
  3. AZATHIOPRINE [Concomitant]
  4. CALCIUM W/ VITAMIN D [Concomitant]
  5. MULTI-VITAMIN [Concomitant]
  6. ACETAMINOPHEN [Concomitant]

REACTIONS (5)
  - ABDOMINAL ABSCESS [None]
  - DEEP VEIN THROMBOSIS [None]
  - LARGE INTESTINE PERFORATION [None]
  - PELVIC ABSCESS [None]
  - PULMONARY EMBOLISM [None]
